FAERS Safety Report 15867081 (Version 1)
Quarter: 2019Q1

REPORT INFORMATION
  Report Type: Spontaneous
  Country: US (occurrence: US)
  Receive Date: 20190124
  Receipt Date: 20190124
  Transmission Date: 20190417
  Serious: Yes (Other)
  Sender: FDA-Public Use
  Company Number: None

PATIENT
  Age: 64 Year
  Sex: Female
  Weight: 63 kg

DRUGS (2)
  1. LOSARTAN POTASSIUM 50 MG TAB [Suspect]
     Active Substance: LOSARTAN POTASSIUM
     Indication: HYPERTENSION
     Dosage: ?          QUANTITY:1 TABLET(S);?
     Route: 048
     Dates: start: 20170801, end: 20190123
  2. IBUPROFEN. [Suspect]
     Active Substance: IBUPROFEN

REACTIONS (9)
  - Blood pressure increased [None]
  - Nausea [None]
  - Recalled product administered [None]
  - Diarrhoea [None]
  - Dizziness [None]
  - Abdominal pain upper [None]
  - Dyspnoea [None]
  - Palpitations [None]
  - Vertigo [None]

NARRATIVE: CASE EVENT DATE: 20181225
